FAERS Safety Report 6387280-0 (Version None)
Quarter: 2009Q4

REPORT INFORMATION
  Report Type: 
  Country: None (occurrence: None)
  Receive Date: 20091002
  Receipt Date: 20090922
  Transmission Date: 20100525
  Serious: Yes (Other)
  Sender: FDA-Public Use
  Company Number: GB-ABBOTT-09P-167-0598514-00

PATIENT
  Age: 8 Year
  Sex: Female

DRUGS (3)
  1. VALPROATE SODIUM [Suspect]
     Indication: DRUG USE FOR UNKNOWN INDICATION
     Route: 048
  2. RUFINAMIDE [Interacting]
     Indication: LENNOX-GASTAUT SYNDROME
     Route: 048
     Dates: start: 20090104, end: 20090428
  3. RUFINAMIDE [Interacting]
     Route: 048
     Dates: end: 20090103

REACTIONS (4)
  - APPETITE DISORDER [None]
  - ATAXIA [None]
  - DRUG INTERACTION [None]
  - GAIT DISTURBANCE [None]
